FAERS Safety Report 24803653 (Version 1)
Quarter: 2025Q1

REPORT INFORMATION
  Report Type: Report from Study
  Country: US (occurrence: US)
  Receive Date: 20250103
  Receipt Date: 20250103
  Transmission Date: 20250409
  Serious: Yes (Other)
  Sender: SANOFI AVENTIS
  Company Number: US-DialogSolutions-SAAVPROD-PI724492-C3

PATIENT
  Age: 60 Year
  Sex: Male

DRUGS (2)
  1. SEVELAMER HYDROCHLORIDE [Suspect]
     Active Substance: SEVELAMER HYDROCHLORIDE
     Indication: End stage renal disease
  2. HEPARIN [Concomitant]
     Active Substance: HEPARIN SODIUM
     Indication: Atrial flutter

REACTIONS (6)
  - Gastrointestinal erosion [Unknown]
  - Large intestinal ulcer [Recovered/Resolved]
  - Melaena [Recovered/Resolved]
  - Injury [Unknown]
  - Erythema [Unknown]
  - Crystal deposit intestine [Unknown]
